FAERS Safety Report 22256369 (Version 2)
Quarter: 2023Q2

REPORT INFORMATION
  Report Type: Spontaneous
  Country: US (occurrence: US)
  Receive Date: 20230426
  Receipt Date: 20230515
  Transmission Date: 20230721
  Serious: No
  Sender: FDA-Public Use
  Company Number: US-CYCLE PHARMACEUTICALS LTD-2023-CYC-000014

PATIENT

DRUGS (1)
  1. NITYR [Suspect]
     Active Substance: NITISINONE
     Indication: Tyrosinaemia
     Dosage: DISSOLVE NINE 2 MG TABLETS IN 10 ML OF WATER AND GIVE 5 ML TWICE A DAY
     Route: 065

REACTIONS (2)
  - Intentional product use issue [Unknown]
  - Product prescribing error [Recovered/Resolved]
